FAERS Safety Report 8230870-0 (Version None)
Quarter: 2012Q1

REPORT INFORMATION
  Report Type: 
  Country: None (occurrence: None)
  Receive Date: 20120323
  Receipt Date: 20120314
  Transmission Date: 20120608
  Serious: Yes (Other)
  Sender: FDA-Public Use
  Company Number: US-BRISTOL-MYERS SQUIBB COMPANY-16454464

PATIENT
  Age: 74 Year
  Sex: Male

DRUGS (2)
  1. METFORMIN HCL [Suspect]
     Dosage: PARENTRAL INJECTION SOL 1DF=100 IU/ML 18 UNITS,DAILY,SC 24UNITS,DAILY-ONG
  2. LANTUS [Suspect]
     Indication: TYPE 2 DIABETES MELLITUS
     Dosage: 1DF=18UNITS A COUPLE OF YEARS AGO TRADE NAME:LANTUS SOLOSTAR
     Route: 058

REACTIONS (1)
  - RENAL DISORDER [None]
